FAERS Safety Report 6750189-4 (Version None)
Quarter: 2010Q2

REPORT INFORMATION
  Report Type: 
  Country: None (occurrence: None)
  Receive Date: 20100601
  Receipt Date: 20100521
  Transmission Date: 20101027
  Serious: Yes (Hospitalization)
  Sender: FDA-Public Use
  Company Number: JP-PFIZER INC-2010048649

PATIENT
  Age: 65 Year
  Sex: Male
  Weight: 45.3 kg

DRUGS (6)
  1. SUNITINIB MALATE [Suspect]
     Indication: METASTATIC RENAL CELL CARCINOMA
     Dosage: 50 MG, 1X/DAY
     Route: 048
     Dates: start: 20090706, end: 20090713
  2. MEDICON [Concomitant]
     Dosage: UNK
     Route: 048
  3. FERROMIA [Concomitant]
     Dosage: UNK
     Route: 048
  4. NORVASC [Concomitant]
     Dosage: UNK
     Route: 048
     Dates: start: 20090713
  5. PARIET [Concomitant]
     Dosage: UNK
     Route: 048
     Dates: start: 20090715
  6. SODIUM ALGINATE [Concomitant]
     Dosage: UNK
     Route: 048
     Dates: start: 20090715

REACTIONS (1)
  - GASTRIC ULCER HAEMORRHAGE [None]
